FAERS Safety Report 11389481 (Version 1)
Quarter: 2015Q3

REPORT INFORMATION
  Report Type: Report from Study
  Country: US (occurrence: US)
  Receive Date: 20150817
  Receipt Date: 20150817
  Transmission Date: 20151125
  Serious: Yes (Death, Hospitalization, Other)
  Sender: FDA-Public Use
  Company Number: US-EXELIXIS-CABO-14004933

PATIENT
  Age: 67 Year
  Sex: Female
  Weight: 48 kg

DRUGS (8)
  1. SIMVASTATIN. [Concomitant]
     Active Substance: SIMVASTATIN
  2. SYNTHROID [Concomitant]
     Active Substance: LEVOTHYROXINE SODIUM
  3. VITAMIN D [Concomitant]
     Active Substance: CHOLECALCIFEROL
  4. COMETRIQ [Suspect]
     Active Substance: CABOZANTINIB S-MALATE
     Indication: THYROID CANCER
     Dosage: 20 MG, QD
     Route: 048
     Dates: start: 20140902, end: 20141109
  5. BENICAR [Concomitant]
     Active Substance: OLMESARTAN MEDOXOMIL
  6. COMETRIQ [Suspect]
     Active Substance: CABOZANTINIB S-MALATE
     Dosage: 20 MG, QD
     Route: 048
     Dates: start: 20141117, end: 2015
  7. COMETRIQ [Suspect]
     Active Substance: CABOZANTINIB S-MALATE
     Dosage: 20 MG, QD
     Route: 048
     Dates: start: 20150221, end: 201508
  8. NEXIUM [Concomitant]
     Active Substance: ESOMEPRAZOLE MAGNESIUM

REACTIONS (11)
  - Pneumonia aspiration [Not Recovered/Not Resolved]
  - Arthralgia [Unknown]
  - Aspiration [Not Recovered/Not Resolved]
  - Pain in jaw [Unknown]
  - Death [Fatal]
  - Dry mouth [Unknown]
  - Pain [Unknown]
  - Haemoptysis [Recovered/Resolved]
  - Epistaxis [Unknown]
  - Dysgeusia [Unknown]
  - Dysphonia [Unknown]

NARRATIVE: CASE EVENT DATE: 201409
